FAERS Safety Report 6612176-6 (Version None)
Quarter: 2010Q1

REPORT INFORMATION
  Report Type: 
  Country: None (occurrence: None)
  Receive Date: 20100303
  Receipt Date: 20100224
  Transmission Date: 20100710
  Serious: Yes (Hospitalization)
  Sender: FDA-Public Use
  Company Number: TR-ELI_LILLY_AND_COMPANY-TR201003000235

PATIENT
  Sex: Female

DRUGS (5)
  1. HUMALOG MIX 75/25 [Suspect]
     Indication: DIABETES MELLITUS
     Dosage: 22 IU, EACH MORNING
     Route: 058
     Dates: start: 20091201
  2. HUMALOG MIX 75/25 [Suspect]
     Dosage: 18 IU, EACH EVENING
     Route: 058
     Dates: start: 20091201
  3. DELIX [Concomitant]
     Indication: HYPERTENSION
     Dosage: UNK UNK, DAILY (1/D)
     Route: 048
  4. TEFOR [Concomitant]
     Indication: THYROID DISORDER
     Dosage: UNK UNK, 2/D
     Route: 048
  5. PLAVIX [Concomitant]
     Indication: CARDIAC DISORDER
     Dosage: UNK UNK, DAILY (1/D)
     Route: 048

REACTIONS (3)
  - ARTHRALGIA [None]
  - BLOOD GLUCOSE INCREASED [None]
  - OEDEMA PERIPHERAL [None]
